FAERS Safety Report 20091758 (Version 1)
Quarter: 2021Q4

REPORT INFORMATION
  Report Type: Spontaneous
  Country: NL (occurrence: NL)
  Receive Date: 20211119
  Receipt Date: 20211119
  Transmission Date: 20220303
  Serious: Yes (Hospitalization)
  Sender: FDA-Public Use
  Company Number: None

PATIENT
  Age: 71 Year
  Sex: Male
  Weight: 79 kg

DRUGS (5)
  1. OMEPRAZOLE [Suspect]
     Active Substance: OMEPRAZOLE
     Indication: Prophylaxis
     Dosage: 40 MILLIGRAM, QD, 1 X PER DAY 1 PIECE
     Route: 065
     Dates: start: 2020, end: 20210828
  2. SIMVASTATIN [Concomitant]
     Active Substance: SIMVASTATIN
     Dosage: 40 MILLIGRAM, FILM-COATED TABLET
  3. DIPYRIDAMOLE [Concomitant]
     Active Substance: DIPYRIDAMOLE
     Dosage: 200 MILLIGRAM, MODIFIED RELEASE CAPSULE
  4. BISOPROLOL [Concomitant]
     Active Substance: BISOPROLOL
     Dosage: 5 MILLIGRAM
  5. ASPIRIN [Concomitant]
     Active Substance: ASPIRIN
     Dosage: 80 MILLIGRAM

REACTIONS (1)
  - Hypomagnesaemia [Recovering/Resolving]

NARRATIVE: CASE EVENT DATE: 20210828
